FAERS Safety Report 4528613-7 (Version None)
Quarter: 2004Q4

REPORT INFORMATION
  Report Type: 
  Country: None (occurrence: None)
  Receive Date: 20041216
  Receipt Date: 20041029
  Transmission Date: 20050328
  Serious: Yes (Hospitalization)
  Sender: FDA-Public Use
  Company Number: JP-MERCK-0411USA00296

PATIENT
  Age: 37 Year
  Sex: Female

DRUGS (32)
  1. MAXALT RPD [Suspect]
     Indication: MIGRAINE
     Route: 048
     Dates: end: 20041025
  2. MAXALT RPD [Suspect]
     Route: 048
     Dates: start: 20041018, end: 20041018
  3. MAXALT RPD [Suspect]
     Route: 048
     Dates: start: 20041020, end: 20041020
  4. MAXALT RPD [Suspect]
     Route: 048
     Dates: start: 20041022, end: 20041022
  5. MAXALT RPD [Suspect]
     Route: 048
     Dates: start: 20041024, end: 20041024
  6. MAXALT RPD [Suspect]
     Route: 048
     Dates: start: 20040101, end: 20041025
  7. VOLTAREN [Suspect]
     Indication: MIGRAINE
     Route: 048
     Dates: start: 20040301, end: 20041025
  8. LANSOPRAZOLE [Suspect]
     Indication: GASTRIC ULCER
     Route: 048
     Dates: start: 20040301, end: 20041025
  9. [THERAPY UNSPECIFIED] [Concomitant]
     Route: 048
  10. [THERAPY UNSPECIFIED] [Concomitant]
     Route: 048
  11. ZYRTEC [Concomitant]
     Route: 048
  12. [THERAPY UNSPECIFIED] [Concomitant]
     Route: 048
  13. [THERAPY UNSPECIFIED] [Concomitant]
     Route: 048
  14. AMOXAPINE [Concomitant]
     Route: 048
  15. FURSULTIAMINE [Concomitant]
     Route: 048
  16. DICLOFENAC SODIUM [Concomitant]
     Route: 061
  17. TERNELIN [Concomitant]
     Route: 048
  18. PRONASE [Concomitant]
     Route: 048
  19. VITAMIN B COMPLEX [Concomitant]
     Indication: SLEEP DISORDER
     Route: 048
     Dates: end: 20041019
  20. LORMETAZEPAM [Concomitant]
     Route: 048
  21. KETOPROFEN [Concomitant]
     Route: 061
  22. BERIZYME [Concomitant]
     Route: 048
  23. DOMPERIDONE [Concomitant]
     Indication: NAUSEA
     Route: 048
  24. HYALURONATE SODIUM [Concomitant]
     Route: 048
  25. WAX, WHITE [Concomitant]
     Route: 061
  26. PETROLATUM, WHITE [Concomitant]
     Route: 061
  27. BETAMETHASONE DIPROPIONATE [Concomitant]
     Route: 065
  28. BETAMETHASONE VALERATE [Concomitant]
     Route: 061
  29. ALMETA [Concomitant]
     Route: 061
  30. EURAX [Concomitant]
     Route: 061
  31. HEPARINOID [Concomitant]
     Route: 061
  32. HOMOCLOMIN [Concomitant]
     Route: 048

REACTIONS (7)
  - ANXIETY [None]
  - DERMOGRAPHISM [None]
  - ERYTHEMA [None]
  - HEADACHE [None]
  - SCRATCH [None]
  - URTICARIA [None]
  - URTICARIA CHRONIC [None]
